FAERS Safety Report 19168223 (Version 1)
Quarter: 2021Q2

REPORT INFORMATION
  Report Type: Spontaneous
  Country: IT (occurrence: IT)
  Receive Date: 20210422
  Receipt Date: 20210422
  Transmission Date: 20210717
  Serious: Yes (Hospitalization)
  Sender: FDA-Public Use
  Company Number: NVSC2021IT080734

PATIENT
  Age: 33 Year
  Sex: Female

DRUGS (1)
  1. GABAPENTIN. [Suspect]
     Active Substance: GABAPENTIN
     Indication: INTENTIONAL OVERDOSE
     Dosage: 1600 MG TOTAL
     Route: 048
     Dates: start: 20210306, end: 20210306

REACTIONS (3)
  - Intentional overdose [Not Recovered/Not Resolved]
  - Facial spasm [Not Recovered/Not Resolved]
  - Dystonia [Not Recovered/Not Resolved]

NARRATIVE: CASE EVENT DATE: 20210306
